FAERS Safety Report 17787410 (Version 1)
Quarter: 2020Q2

REPORT INFORMATION
  Report Type: Spontaneous
  Country: US (occurrence: US)
  Receive Date: 20200514
  Receipt Date: 20200514
  Transmission Date: 20200714
  Serious: No
  Sender: FDA-Public Use
  Company Number: US-009507513-2005USA001004

PATIENT
  Sex: Female

DRUGS (1)
  1. PRINIVIL [Suspect]
     Active Substance: LISINOPRIL
     Dosage: 25 MILLIGRAM
     Route: 048

REACTIONS (6)
  - Cough [Recovering/Resolving]
  - Depressed mood [Unknown]
  - Hair injury [Not Recovered/Not Resolved]
  - Economic problem [Unknown]
  - Alopecia [Not Recovered/Not Resolved]
  - Hypertension [Unknown]
